FAERS Safety Report 8469464-0 (Version None)
Quarter: 2012Q2

REPORT INFORMATION
  Report Type: 
  Country: None (occurrence: None)
  Receive Date: 20120626
  Receipt Date: 20120612
  Transmission Date: 20120825
  Serious: No
  Sender: FDA-Public Use
  Company Number: US-ASTRAZENECA-2012SE39596

PATIENT
  Age: 57 Year
  Sex: Male

DRUGS (2)
  1. SEROQUEL XR [Suspect]
     Route: 048
  2. REPLACEMENT MEDICATION [Suspect]
     Route: 065

REACTIONS (2)
  - ADVERSE EVENT [None]
  - DRUG THERAPY CHANGED [None]
